FAERS Safety Report 19847495 (Version 1)
Quarter: 2021Q3

REPORT INFORMATION
  Report Type: Spontaneous
  Country: DE (occurrence: DE)
  Receive Date: 20210917
  Receipt Date: 20210917
  Transmission Date: 20211014
  Serious: Yes (Hospitalization)
  Sender: FDA-Public Use
  Company Number: DE-TEVA-2021-DE-1952291

PATIENT
  Age: 60 Year
  Sex: Female

DRUGS (13)
  1. BISOPROLOL [Concomitant]
     Active Substance: BISOPROLOL
     Dosage: 2.5 MILLIGRAM DAILY; 1?0?0?0
  2. TOLVAPTAN [Concomitant]
     Active Substance: TOLVAPTAN
     Dosage: 7.5 MILLIGRAM DAILY; 1?0?0?0
  3. RISPERIDON [Concomitant]
     Active Substance: RISPERIDONE
     Dosage: 1 MILLIGRAM DAILY; 1?0?1?0
  4. LEVETIRACETAM. [Concomitant]
     Active Substance: LEVETIRACETAM
     Dosage: 3 GRAM DAILY; 1.5 G, 1?0?1?0
  5. LACOSAMID [Concomitant]
     Active Substance: LACOSAMIDE
     Dosage: 400 MILLIGRAM DAILY; 1?0?1?0
  6. KALIUM [Concomitant]
     Active Substance: POTASSIUM CHLORIDE
     Dosage: SCHEME
  7. PREDNISOLON [Concomitant]
     Active Substance: PREDNISOLONE
     Dosage: 15 MG, SCHEME
  8. PANTOPRAZOL [Concomitant]
     Active Substance: PANTOPRAZOLE SODIUM
     Dosage: 20 MILLIGRAM DAILY;  1?0?0?0
  9. CARBOPLATIN. [Suspect]
     Active Substance: CARBOPLATIN
     Dosage: SCHEME
     Route: 065
  10. ACETYLSALICYLSAURE [Concomitant]
     Active Substance: ASPIRIN
     Dosage: 100 MILLIGRAM DAILY; 1?0?0?0
  11. ATEZOLIZUMAB. [Suspect]
     Active Substance: ATEZOLIZUMAB
     Dosage: SCHEME
     Route: 065
  12. ETOPOSID [Suspect]
     Active Substance: ETOPOSIDE
     Dosage: SCHEME
     Route: 065
  13. LORAZEPAM. [Concomitant]
     Active Substance: LORAZEPAM
     Dosage: 1 MILLIGRAM DAILY;  0?0?1?0

REACTIONS (6)
  - Anaemia [Unknown]
  - Renal impairment [Unknown]
  - Polyuria [Unknown]
  - General physical health deterioration [Unknown]
  - Muscular weakness [Unknown]
  - Condition aggravated [Unknown]
